FAERS Safety Report 24361628 (Version 4)
Quarter: 2024Q4

REPORT INFORMATION
  Report Type: Spontaneous
  Country: US (occurrence: US)
  Receive Date: 20240925
  Receipt Date: 20241014
  Transmission Date: 20250115
  Serious: Yes (Other)
  Sender: ROCHE
  Company Number: US-ROCHE-10000083414

PATIENT
  Age: 57 Year
  Sex: Female
  Weight: 62.59 kg

DRUGS (1)
  1. OCREVUS [Suspect]
     Active Substance: OCRELIZUMAB
     Indication: Relapsing-remitting multiple sclerosis
     Route: 042

REACTIONS (8)
  - Cardiac failure [Not Recovered/Not Resolved]
  - Optic neuritis [Recovering/Resolving]
  - Dyspnoea [Unknown]
  - Ejection fraction decreased [Not Recovered/Not Resolved]
  - Ventricular tachycardia [Unknown]
  - Urinary tract infection [Unknown]
  - Diplopia [Unknown]
  - Atrophy [Unknown]

NARRATIVE: CASE EVENT DATE: 20240101
